FAERS Safety Report 7945210-1 (Version None)
Quarter: 2011Q4

REPORT INFORMATION
  Report Type: 
  Country: None (occurrence: None)
  Receive Date: 20111129
  Receipt Date: 20110323
  Transmission Date: 20120403
  Serious: No
  Sender: FDA-Public Use
  Company Number: US-GLAXOSMITHKLINE-A0919542A

PATIENT
  Sex: Female

DRUGS (2)
  1. MULTIPLE MEDICATIONS [Concomitant]
  2. FLOVENT [Suspect]
     Indication: BRONCHITIS
     Dosage: 2 PER DAY
     Route: 055
     Dates: start: 20110315, end: 20110320

REACTIONS (2)
  - TONGUE DISORDER [None]
  - GLOSSODYNIA [None]
